FAERS Safety Report 18409300 (Version 1)
Quarter: 2020Q4

REPORT INFORMATION
  Report Type: Spontaneous
  Country: DE (occurrence: DE)
  Receive Date: 20201021
  Receipt Date: 20201021
  Transmission Date: 20210114
  Serious: Yes (Other)
  Sender: FDA-Public Use
  Company Number: DE-TEVA-2020-DE-1839744

PATIENT
  Age: 56 Year
  Sex: Female
  Weight: 63 kg

DRUGS (2)
  1. AMOXICILLIN. [Suspect]
     Active Substance: AMOXICILLIN
     Indication: HELICOBACTER INFECTION
     Dosage: 2X1000, WITHDRAWN BY THE PATIENT ON THE 7TH DAY FIRST TIME APPLICATION, UNIT DOSE : 1000 MG
     Dates: start: 20200526, end: 20200602
  2. OMEPRAZOLE. [Concomitant]
     Active Substance: OMEPRAZOLE
     Indication: HELICOBACTER INFECTION

REACTIONS (8)
  - Rash pruritic [Unknown]
  - Dyspnoea at rest [Unknown]
  - Rash pustular [Unknown]
  - Vulvovaginal mycotic infection [Unknown]
  - Chest discomfort [Unknown]
  - Dyspnoea exertional [Unknown]
  - Rash rubelliform [Unknown]
  - Tongue discomfort [Unknown]

NARRATIVE: CASE EVENT DATE: 2020
